FAERS Safety Report 6114439-X (Version None)
Quarter: 2009Q1

REPORT INFORMATION
  Report Type: 
  Country: None (occurrence: None)
  Receive Date: 20090313
  Receipt Date: 20090302
  Transmission Date: 20090719
  Serious: Yes (Other)
  Sender: FDA-Public Use
  Company Number: PHHY2009BR07653

PATIENT
  Age: 19 Year
  Sex: Male

DRUGS (3)
  1. RITALIN [Suspect]
     Dosage: 1 TABLET IN THE MORNING
  2. TRILEPTAL [Suspect]
     Dosage: 1 TABLET BEFORE SLEEPING
     Route: 048
  3. CITALOPRAM HYDROBROMIDE [Concomitant]
     Dosage: TWO TABLETS DAILY

REACTIONS (7)
  - AGITATION [None]
  - DEPRESSED MOOD [None]
  - DEPRESSION [None]
  - NERVOUSNESS [None]
  - OEDEMA PERIPHERAL [None]
  - SWELLING FACE [None]
  - WEIGHT INCREASED [None]
